FAERS Safety Report 21454822 (Version 1)
Quarter: 2022Q4

REPORT INFORMATION
  Report Type: Spontaneous
  Country: US (occurrence: US)
  Receive Date: 20221014
  Receipt Date: 20221014
  Transmission Date: 20230112
  Serious: Yes (Other)
  Sender: FDA-Public Use
  Company Number: US-TOLMAR, INC.-22US036998

PATIENT
  Age: 29 Day
  Sex: Female

DRUGS (2)
  1. ACYCLOVIR [Suspect]
     Active Substance: ACYCLOVIR
     Indication: Herpes simplex encephalitis
     Dosage: 20 MILLIGRAM PER KILOGRAM, Q 8 HR
     Route: 042
  2. ACYCLOVIR [Suspect]
     Active Substance: ACYCLOVIR
     Dosage: TRANSITIONED TO A SUPPRESSIVE DOSE FOR 6 MONTHS
     Route: 042

REACTIONS (1)
  - Encephalitis autoimmune [Recovering/Resolving]
